FAERS Safety Report 5330216-1 (Version None)
Quarter: 2007Q2

REPORT INFORMATION
  Report Type: 
  Country: None (occurrence: None)
  Receive Date: 20070521
  Receipt Date: 20070508
  Transmission Date: 20071010
  Serious: Yes (Hospitalization)
  Sender: FDA-Public Use
  Company Number: US-ELI_LILLY_AND_COMPANY-US200705002092

PATIENT
  Age: 65 Year
  Sex: Female

DRUGS (7)
  1. CYMBALTA [Suspect]
     Indication: FIBROMYALGIA
     Dosage: UNK MG, UNK
  2. CYMBALTA [Suspect]
     Dosage: 90 MG, DAILY (1/D)
  3. CYMBALTA [Suspect]
     Dosage: 60 MG, EACH EVENING
  4. LIPITOR [Concomitant]
  5. MORPHINE SULFATE [Concomitant]
  6. NEXIUM [Concomitant]
  7. BACLOFEN [Concomitant]

REACTIONS (2)
  - DEPRESSION [None]
  - PRESCRIBED OVERDOSE [None]
